FAERS Safety Report 6230779-8 (Version None)
Quarter: 2009Q2

REPORT INFORMATION
  Report Type: 
  Country: None (occurrence: None)
  Receive Date: 20090616
  Receipt Date: 20090603
  Transmission Date: 20091009
  Serious: Yes (Other)
  Sender: FDA-Public Use
  Company Number: US-PFIZER INC-2009222859

PATIENT
  Sex: Female
  Weight: 57.606 kg

DRUGS (1)
  1. CHANTIX [Suspect]

REACTIONS (3)
  - DEMENTIA ALZHEIMER'S TYPE [None]
  - HEPATITIS C [None]
  - SUICIDE ATTEMPT [None]
